FAERS Safety Report 15366472 (Version 1)
Quarter: 2018Q3

REPORT INFORMATION
  Report Type: Spontaneous
  Country: US (occurrence: US)
  Receive Date: 20180831
  Receipt Date: 20180831
  Transmission Date: 20181010
  Serious: Yes (Death, Other)
  Sender: FDA-Public Use
  Company Number: None

PATIENT
  Age: 56 Year
  Sex: Female
  Weight: 54.9 kg

DRUGS (8)
  1. LASIX [Concomitant]
     Active Substance: FUROSEMIDE
  2. PEPCID [Concomitant]
     Active Substance: FAMOTIDINE
  3. DOCUSATE [Concomitant]
     Active Substance: DOCUSATE
  4. TRAMADOL. [Concomitant]
     Active Substance: TRAMADOL
  5. ONDANSETRON [Concomitant]
     Active Substance: ONDANSETRON
  6. CAPECITABINE. [Suspect]
     Active Substance: CAPECITABINE
     Indication: BREAST CANCER
     Route: 048
     Dates: start: 20180626, end: 20180828
  7. MORPHINE [Concomitant]
     Active Substance: MORPHINE
  8. FENTANYL. [Concomitant]
     Active Substance: FENTANYL

REACTIONS (1)
  - Disease progression [None]
